FAERS Safety Report 20904797 (Version 1)
Quarter: 2022Q2

REPORT INFORMATION
  Report Type: Spontaneous
  Country: US (occurrence: None)
  Receive Date: 20220601
  Receipt Date: 20220601
  Transmission Date: 20220721
  Serious: Yes (Hospitalization)
  Sender: FDA-Public Use
  Company Number: None

PATIENT
  Age: 58 Year
  Sex: Female

DRUGS (2)
  1. RYDAPT [Suspect]
     Active Substance: MIDOSTAURIN
     Indication: Acute myeloid leukaemia
     Dosage: FREQUENCY : TWICE A DAY;?
     Route: 048
     Dates: start: 20220415
  2. RYDAPT [Suspect]
     Active Substance: MIDOSTAURIN
     Indication: Bone marrow transplant

REACTIONS (2)
  - Liver disorder [None]
  - Therapy interrupted [None]

NARRATIVE: CASE EVENT DATE: 20220501
